FAERS Safety Report 9408361 (Version 1)
Quarter: 2013Q3

REPORT INFORMATION
  Report Type: Report from Study
  Country: US (occurrence: US)
  Receive Date: 20130718
  Receipt Date: 20130718
  Transmission Date: 20140515
  Serious: Yes (Other)
  Sender: FDA-Public Use
  Company Number: US-ABBOTT-13P-163-1097104-00

PATIENT
  Age: 45 Year
  Sex: Female
  Weight: 82.17 kg

DRUGS (9)
  1. HUMIRA [Suspect]
     Indication: PSORIATIC ARTHROPATHY
     Dates: start: 20130415, end: 20130625
  2. NEURONTIN [Concomitant]
     Indication: PRODUCT USED FOR UNKNOWN INDICATION
     Route: 048
  3. ZESTRIL [Concomitant]
     Indication: PRODUCT USED FOR UNKNOWN INDICATION
     Route: 048
     Dates: start: 20130128
  4. ARAVA [Concomitant]
     Indication: PRODUCT USED FOR UNKNOWN INDICATION
     Route: 048
     Dates: start: 20130516, end: 20130610
  5. TOPAMAX [Concomitant]
     Indication: PRODUCT USED FOR UNKNOWN INDICATION
     Route: 048
     Dates: start: 20130408
  6. CHICKWEED [Concomitant]
     Indication: PSORIASIS
  7. MAXALT [Concomitant]
     Indication: MIGRAINE
     Dosage: 1 TAB AT ONSET OF MIGRAINE. MAY REPEAT 1X IN 2 HRS IF NEEDED.
     Dates: start: 20121017
  8. NORCO [Concomitant]
     Indication: PAIN
     Dosage: 5-325 MG; 1 TABLET VERY 6 HOURS AS NEEDED
     Dates: start: 20120822
  9. PLO GEL - MEDIFLO PRE-MIXED GEL [Concomitant]
     Indication: PRODUCT USED FOR UNKNOWN INDICATION
     Dosage: AMITRIPTYLINE 2%, LIDOCAINE 5%, KETAMINE 5%
     Route: 061

REACTIONS (5)
  - Nephrolithiasis [Recovering/Resolving]
  - Drug effect decreased [Unknown]
  - Abdominal adhesions [Unknown]
  - Abdominal distension [Unknown]
  - Stress urinary incontinence [Unknown]
